FAERS Safety Report 9227136 (Version 2)
Quarter: 2013Q4

REPORT INFORMATION
  Report Type: Spontaneous
  Country: GB (occurrence: None)
  Receive Date: 20130410
  Receipt Date: 20131101
  Transmission Date: 20140711
  Serious: Yes (Other)
  Sender: FDA-Public Use
  Company Number: AUR-APL-2013-02717

PATIENT
  Age: 84 Year
  Sex: Male
  Weight: 66.8 kg

DRUGS (5)
  1. BISOPROLOL [Suspect]
     Indication: TACHYCARDIA
     Dates: start: 20130128
  2. ADCAL- D3 ( LEKOVI T CA) [Concomitant]
  3. PRAVASTATIN(PRAVA?STATIN) [Concomitant]
  4. RANITIDINE(RANITIDINE) [Concomitant]
  5. XARELTO(RIVAROXABAN) [Concomitant]

REACTIONS (5)
  - Tachycardia [None]
  - Disorientation [None]
  - Hallucination [None]
  - Heart rate decreased [None]
  - Dyspnoea [None]
